FAERS Safety Report 4291829-1 (Version None)
Quarter: 2004Q1

REPORT INFORMATION
  Report Type: 
  Country: None (occurrence: None)
  Receive Date: 20040211
  Receipt Date: 20030616
  Transmission Date: 20041129
  Serious: No
  Sender: FDA-Public Use
  Company Number: US-GLAXOSMITHKLINE-A0412658A

PATIENT
  Age: 67 Year
  Sex: Female

DRUGS (5)
  1. IMITREX [Suspect]
     Indication: MIGRAINE
  2. IMITREX [Suspect]
     Route: 048
  3. NORVASC [Concomitant]
  4. FLEXERIL [Concomitant]
  5. PREMARIN [Concomitant]

REACTIONS (1)
  - HEPATIC ENZYME INCREASED [None]
